FAERS Safety Report 7818397-9 (Version None)
Quarter: 2011Q4

REPORT INFORMATION
  Report Type: 
  Country: None (occurrence: None)
  Receive Date: 20111017
  Receipt Date: 20110203
  Transmission Date: 20120403
  Serious: No
  Sender: FDA-Public Use
  Company Number: US-BAYER-201033042NA

PATIENT
  Age: 52 Year
  Sex: Female
  Weight: 126.98 kg

DRUGS (1)
  1. MAGNEVIST [Suspect]
     Indication: PRODUCT USED FOR UNKNOWN INDICATION
     Dosage: 20 ML, UNK
     Route: 042
     Dates: start: 20100628, end: 20100628

REACTIONS (3)
  - VOMITING [None]
  - DIZZINESS [None]
  - NAUSEA [None]
